FAERS Safety Report 7600371-9 (Version None)
Quarter: 2011Q3

REPORT INFORMATION
  Report Type: 
  Country: None (occurrence: None)
  Receive Date: 20110711
  Receipt Date: 20110628
  Transmission Date: 20111222
  Serious: Yes (Hospitalization, Other)
  Sender: FDA-Public Use
  Company Number: US-ELI_LILLY_AND_COMPANY-US201004006887

PATIENT
  Age: 74 Year
  Sex: Female

DRUGS (9)
  1. FORTEO [Suspect]
     Dosage: 20 UG, DAILY (1/D)
     Route: 058
     Dates: start: 20100119
  2. SYNTHROID [Concomitant]
  3. VICODIN [Concomitant]
  4. FORTEO [Suspect]
     Dosage: 20 UG, QD
     Route: 058
  5. OMEPRAZOLE [Concomitant]
     Dosage: 20 MG, DAILY (1/D)
  6. ZOLOFT [Concomitant]
     Dosage: 50 MG, DAILY (1/D)
  7. FENTANYL [Concomitant]
     Dosage: 25 MEQ, UNK
  8. FORTEO [Suspect]
     Indication: OSTEOPOROSIS
     Dosage: 20 UG, DAILY (1/D)
     Route: 058
     Dates: start: 20090401, end: 20091001
  9. CALCIUM WITH VITAMIN D [Concomitant]
     Dosage: 1200 MG, 2/D

REACTIONS (15)
  - BALANCE DISORDER [None]
  - PUBIS FRACTURE [None]
  - FALL [None]
  - JOINT INJURY [None]
  - HAEMORRHAGE [None]
  - DEEP VEIN THROMBOSIS [None]
  - MYALGIA [None]
  - GAIT DISTURBANCE [None]
  - FATIGUE [None]
  - HEADACHE [None]
  - MYOCARDIAL INFARCTION [None]
  - ASTHENIA [None]
  - GASTRIC HAEMORRHAGE [None]
  - COLONIC POLYP [None]
  - DIZZINESS [None]
